FAERS Safety Report 10510679 (Version 1)
Quarter: 2014Q4

REPORT INFORMATION
  Report Type: Spontaneous
  Country: US (occurrence: None)
  Receive Date: 20141009
  Receipt Date: 20141009
  Transmission Date: 20150528
  Serious: Yes (Other)
  Sender: FDA-Public Use
  Company Number: None

PATIENT
  Age: 28 Year
  Sex: Female

DRUGS (1)
  1. HYDROCODONE/APAP 10/325 QUALITEST [Suspect]
     Active Substance: ACETAMINOPHEN\HYDROCODONE
     Route: 048
     Dates: start: 20141006, end: 20141007

REACTIONS (3)
  - Product quality issue [None]
  - Hypersensitivity [None]
  - Reaction to drug excipients [None]

NARRATIVE: CASE EVENT DATE: 20141006
